FAERS Safety Report 17415311 (Version 1)
Quarter: 2020Q1

REPORT INFORMATION
  Report Type: Spontaneous
  Country: DE (occurrence: DE)
  Receive Date: 20200213
  Receipt Date: 20200213
  Transmission Date: 20200409
  Serious: Yes (Life-Threatening, Hospitalization)
  Sender: FDA-Public Use
  Company Number: DE-PFIZER INC-2020063736

PATIENT
  Age: 61 Year
  Sex: Female

DRUGS (7)
  1. MST [MORPHINE SULFATE] [Interacting]
     Active Substance: MORPHINE SULFATE
     Indication: PAIN
     Dosage: UNK
     Dates: start: 1995
  2. GABAPENTIN. [Suspect]
     Active Substance: GABAPENTIN
     Dosage: 1 DF, SINGLE
  3. MST [MORPHINE SULFATE] [Interacting]
     Active Substance: MORPHINE SULFATE
     Dosage: 30 MG, DAILY (1 TABLET IN THE AFTERNOON, STRENGTH 30 MG)
  4. URBASON [METHYLPREDNISOLONE] [Concomitant]
     Active Substance: METHYLPREDNISOLONE
     Indication: ANTI-INFECTIVE THERAPY
     Dosage: UNK
  5. MST [MORPHINE SULFATE] [Interacting]
     Active Substance: MORPHINE SULFATE
     Dosage: 60 MG, BID (1 TABLET IN THE MORNING AND 1 TABLET IN THE EVENING, STRENGTH 60 MG)
  6. MST [MORPHINE SULFATE] [Interacting]
     Active Substance: MORPHINE SULFATE
     Dosage: 20 MG, 1X/DAY(20 MG BEFORE GOING TO BED)
  7. TEGRETAL [Concomitant]
     Active Substance: CARBAMAZEPINE
     Dosage: UNK

REACTIONS (5)
  - Drug interaction [Unknown]
  - Body temperature decreased [Unknown]
  - Metabolic disorder [Unknown]
  - Blood potassium decreased [Unknown]
  - Memory impairment [Unknown]
